FAERS Safety Report 6756024-2 (Version None)
Quarter: 2010Q2

REPORT INFORMATION
  Report Type: 
  Country: None (occurrence: None)
  Receive Date: 20100604
  Receipt Date: 20100526
  Transmission Date: 20101027
  Serious: Yes (Other)
  Sender: FDA-Public Use
  Company Number: MY-WYE-H15466210

PATIENT
  Age: 54 Year
  Sex: Male

DRUGS (10)
  1. CORDARONE [Suspect]
     Indication: ATRIAL FIBRILLATION
     Route: 048
     Dates: end: 20090101
  2. WARFARIN SODIUM [Concomitant]
     Dosage: DOSE UNKNOWN
     Route: 065
  3. ENALAPRIL MALEATE [Concomitant]
     Dosage: DOSE UNKNOWN
     Route: 065
  4. LOVASTATIN [Concomitant]
     Dosage: DOSE UNKNOWN
     Route: 065
  5. GLYCERYL TRINITRATE [Concomitant]
     Dosage: DOSE UNKNOWN
     Route: 065
  6. NPH INSULIN [Concomitant]
     Dosage: DOSE UNKNOWN
     Route: 065
  7. GLICLAZIDE [Concomitant]
     Dosage: DOSE UNKNOWN
     Route: 065
  8. ACETYLSALICYLIC ACID [Concomitant]
     Dosage: DOSE UNKNOWN
     Route: 065
  9. ATENOLOL [Suspect]
     Indication: HYPERTENSION
     Route: 048
  10. METFORMIN HYDROCHLORIDE [Concomitant]
     Dosage: DOSE UNKNOWN
     Route: 065

REACTIONS (1)
  - SYNCOPE [None]
